FAERS Safety Report 5154269-9 (Version None)
Quarter: 2006Q4

REPORT INFORMATION
  Report Type: 
  Country: None (occurrence: None)
  Receive Date: 20061120
  Receipt Date: 20060414
  Transmission Date: 20070319
  Serious: Yes (Hospitalization)
  Sender: FDA-Public Use
  Company Number: CN-NOVOPROD-252493

PATIENT
  Sex: Male
  Weight: 80 kg

DRUGS (15)
  1. NOVOSEVEN [Suspect]
     Indication: CEREBRAL HAEMORRHAGE
     Dosage: 80 UG/KG, UNK
     Route: 042
     Dates: start: 20060411, end: 20060411
  2. CEFOTIAM HYDROCHLORIDE [Concomitant]
     Dosage: 2 G, PRN
     Route: 042
     Dates: start: 20060412, end: 20060417
  3. FAMOTIDINE [Concomitant]
     Dosage: 40 MG, QD
     Route: 042
     Dates: start: 20060411
  4. GLUTATHIONE [Concomitant]
     Indication: PROPHYLAXIS
     Dates: start: 20060411, end: 20060417
  5. DOMPERIDONE [Concomitant]
     Indication: DYSPEPSIA
     Dates: start: 20060412, end: 20060417
  6. ORNIDAZOLE [Concomitant]
     Indication: INFECTION
     Dates: start: 19720413, end: 20060417
  7. CAPTOPRIL [Concomitant]
     Indication: HYPERTENSION
     Dates: start: 20060413, end: 20060413
  8. CAPTOPRIL [Concomitant]
     Dates: start: 20060415, end: 20060418
  9. CEFOPERAZONE SODIUM [Concomitant]
     Indication: INFECTION
     Dates: start: 20060417
  10. PIPERAZINE [Concomitant]
     Indication: PROPHYLAXIS
     Dates: start: 20060417
  11. METOPROLOL TARTRATE [Concomitant]
     Indication: HYPERTENSION
     Dates: start: 20060418
  12. INDAPAMIDE [Concomitant]
     Indication: HYPERTENSION
     Dates: start: 20060420
  13. MIDAZOLAM [Concomitant]
     Indication: RESTLESSNESS
     Dates: start: 20060411, end: 20060411
  14. PROCAINE HCL [Concomitant]
     Indication: HICCUPS
     Dates: start: 20060411, end: 20060411
  15. CHLORAL HYDRATE [Concomitant]
     Indication: RESTLESSNESS
     Dates: start: 20060412, end: 20060412

REACTIONS (1)
  - BRAIN OEDEMA [None]
